FAERS Safety Report 7704791-3 (Version None)
Quarter: 2011Q3

REPORT INFORMATION
  Report Type: 
  Country: None (occurrence: None)
  Receive Date: 20110823
  Receipt Date: 20110818
  Transmission Date: 20111222
  Serious: Yes (Other)
  Sender: FDA-Public Use
  Company Number: US-PFIZER INC-2007035646

PATIENT
  Sex: Male

DRUGS (3)
  1. NEURONTIN [Suspect]
     Indication: PAIN IN EXTREMITY
  2. NEURONTIN [Suspect]
     Indication: NEUROPATHY PERIPHERAL
     Dosage: 300MG, 900MG, 1200MG AND ^3MG^
     Dates: start: 20010101, end: 20050101
  3. NEURONTIN [Suspect]
     Indication: NERVE INJURY

REACTIONS (9)
  - AGITATION [None]
  - DRUG INEFFECTIVE FOR UNAPPROVED INDICATION [None]
  - WEIGHT INCREASED [None]
  - SUICIDAL IDEATION [None]
  - THINKING ABNORMAL [None]
  - AGGRESSION [None]
  - AMNESIA [None]
  - HOMICIDAL IDEATION [None]
  - DEPRESSION [None]
